FAERS Safety Report 12218727 (Version 1)
Quarter: 2016Q1

REPORT INFORMATION
  Report Type: Report from Study
  Country: US (occurrence: US)
  Receive Date: 20160329
  Receipt Date: 20160329
  Transmission Date: 20160526
  Serious: Yes (Hospitalization, Other)
  Sender: FDA-Public Use
  Company Number: US-APOPHARMA-2016AP007274

PATIENT
  Age: 55 Year
  Sex: Female
  Weight: 54 kg

DRUGS (5)
  1. DEFERIPRONE [Suspect]
     Active Substance: DEFERIPRONE
     Indication: SICKLE CELL ANAEMIA
     Dosage: 9 MG/KG, TID
     Route: 048
     Dates: start: 20141015
  2. DEFERIPRONE [Suspect]
     Active Substance: DEFERIPRONE
     Indication: HAEMOCHROMATOSIS
  3. HYDROXYUREA. [Concomitant]
     Active Substance: HYDROXYUREA
     Indication: PRODUCT USED FOR UNKNOWN INDICATION
     Route: 065
  4. FOLIC ACID. [Concomitant]
     Active Substance: FOLIC ACID
     Indication: PRODUCT USED FOR UNKNOWN INDICATION
     Route: 065
  5. ACTONEL [Concomitant]
     Active Substance: RISEDRONATE SODIUM
     Indication: PRODUCT USED FOR UNKNOWN INDICATION
     Route: 065

REACTIONS (3)
  - Cardiac failure congestive [Recovered/Resolved]
  - Renal failure [Recovered/Resolved]
  - Hip surgery [Recovered/Resolved]

NARRATIVE: CASE EVENT DATE: 20151220
